FAERS Safety Report 8649590 (Version 2)
Quarter: 2012Q4

REPORT INFORMATION
  Report Type: 
  Country: GB (occurrence: GB)
  Receive Date: 20120705
  Receipt Date: 20120920
  Transmission Date: 20130627
  Serious: Yes (Other)
  Sender: FDA-Public Use
  Company Number: PHFR2012GB003810

PATIENT
  Age: 17 Year
  Sex: Male

DRUGS (2)
  1. EXJADE [Suspect]
     Indication: IRON OVERLOAD
     Dosage: 32 mg/kg, Daily
  2. EXJADE [Suspect]
     Dosage: UNK UKN, UNK

REACTIONS (10)
  - Viral pharyngitis [Unknown]
  - Fluid intake reduced [Unknown]
  - Renal impairment [Unknown]
  - Dehydration [Unknown]
  - Blood creatinine increased [Unknown]
  - Proteinuria [Not Recovered/Not Resolved]
  - Malaise [Unknown]
  - Back pain [Recovering/Resolving]
  - Testicular pain [Recovering/Resolving]
  - Hepatic function abnormal [Unknown]
